FAERS Safety Report 17281919 (Version 1)
Quarter: 2020Q1

REPORT INFORMATION
  Report Type: Spontaneous
  Country: US (occurrence: US)
  Receive Date: 20200117
  Receipt Date: 20200117
  Transmission Date: 20200409
  Serious: Yes (Death)
  Sender: FDA-Public Use
  Company Number: US-009507513-2001USA004506

PATIENT
  Age: 61 Year
  Sex: Male

DRUGS (4)
  1. METHYLENE BLUE. [Concomitant]
     Active Substance: METHYLENE BLUE
     Indication: SHOCK
     Dosage: UNK
  2. HEPARIN [Concomitant]
     Active Substance: HEPARIN SODIUM
     Indication: SHOCK
     Dosage: UNK
  3. NOREPINEPHRINE. [Concomitant]
     Active Substance: NOREPINEPHRINE
     Dosage: 45 MCG/MIN
  4. PRIMAXIN IV [Suspect]
     Active Substance: CILASTATIN SODIUM\IMIPENEM
     Indication: EVIDENCE BASED TREATMENT
     Dosage: UNK

REACTIONS (1)
  - Drug ineffective [Fatal]
